FAERS Safety Report 9507703 (Version 2)
Quarter: 2014Q1

REPORT INFORMATION
  Report Type: Spontaneous
  Country: US (occurrence: US)
  Receive Date: 20130909
  Receipt Date: 20140121
  Transmission Date: 20141002
  Serious: Yes (Hospitalization)
  Sender: FDA-Public Use
  Company Number: US-BAYER-2013-107656

PATIENT
  Age: 27 Year
  Sex: Female
  Weight: 60.32 kg

DRUGS (4)
  1. MIRENA [Suspect]
     Indication: CONTRACEPTION
     Dosage: 20 MCG/24HR, CONT
     Route: 015
     Dates: start: 200903, end: 20130820
  2. CELEXA [Concomitant]
     Indication: DEPRESSION
     Dosage: UNK
     Dates: start: 2001
  3. SEROQUEL [Concomitant]
     Indication: BIPOLAR DISORDER
     Dosage: UNK
     Dates: start: 2011
  4. VYVANSE [Concomitant]
     Indication: ATTENTION DEFICIT/HYPERACTIVITY DISORDER
     Dosage: UNK
     Dates: start: 201202

REACTIONS (12)
  - Embedded device [None]
  - Abdominal pain [None]
  - Abdominal pain lower [None]
  - Injury [None]
  - Medical device pain [None]
  - Emotional distress [None]
  - Depression [None]
  - Anxiety [None]
  - Stress [None]
  - Procedural pain [None]
  - Device issue [None]
  - Menorrhagia [None]
